FAERS Safety Report 19865202 (Version 1)
Quarter: 2021Q3

REPORT INFORMATION
  Report Type: Spontaneous
  Country: US (occurrence: US)
  Receive Date: 20210921
  Receipt Date: 20210921
  Transmission Date: 20211014
  Serious: Yes (Hospitalization)
  Sender: FDA-Public Use
  Company Number: None

PATIENT
  Age: 81 Year
  Sex: Male
  Weight: 72 kg

DRUGS (7)
  1. ENALAPRIL 5MG [Concomitant]
     Active Substance: ENALAPRIL
  2. ERLEADA [Suspect]
     Active Substance: APALUTAMIDE
     Indication: PROSTATE CANCER
     Route: 048
     Dates: start: 20210710
  3. METFOMRIN 500MG [Concomitant]
  4. FLOMAX 0.4MG [Concomitant]
  5. OXYCODONE 10MG [Concomitant]
     Active Substance: OXYCODONE
  6. SIMVASTATIN 5MG [Concomitant]
  7. GABAPENTIN 300MG [Concomitant]
     Active Substance: GABAPENTIN

REACTIONS (1)
  - Fall [None]

NARRATIVE: CASE EVENT DATE: 20210921
